FAERS Safety Report 8386122-1 (Version None)
Quarter: 2012Q2

REPORT INFORMATION
  Report Type: 
  Country: None (occurrence: None)
  Receive Date: 20120523
  Receipt Date: 20120509
  Transmission Date: 20120825
  Serious: Yes (Death, Hospitalization, Other)
  Sender: FDA-Public Use
  Company Number: 09-AUR-10385

PATIENT
  Age: 49 Year
  Sex: Female

DRUGS (2)
  1. METFORMIN HCL [Suspect]
     Indication: PRODUCT USED FOR UNKNOWN INDICATION
     Dosage: (60 DOSAGE FORMS,TOTAL),ORAL
     Route: 048
  2. LISINOPRIL AND HYDROCHLOROTHIAZIDE [Suspect]
     Indication: PRODUCT USED FOR UNKNOWN INDICATION
     Dosage: 20-25 TABLETS OF 12.5/20 MG,ORAL
     Route: 048

REACTIONS (11)
  - DIALYSIS [None]
  - VASCULAR ACCESS COMPLICATION [None]
  - DEPRESSED LEVEL OF CONSCIOUSNESS [None]
  - NAUSEA [None]
  - DIARRHOEA [None]
  - LACTIC ACIDOSIS [None]
  - HYPOTENSION [None]
  - RENAL FAILURE ACUTE [None]
  - PULSELESS ELECTRICAL ACTIVITY [None]
  - VOMITING [None]
  - TACHYPNOEA [None]
